FAERS Safety Report 4348379-3 (Version None)
Quarter: 2004Q2

REPORT INFORMATION
  Report Type: 
  Country: None (occurrence: None)
  Receive Date: 20040422
  Receipt Date: 20040405
  Transmission Date: 20050107
  Serious: Yes (Hospitalization)
  Sender: FDA-Public Use
  Company Number: EWC040338500

PATIENT
  Age: 70 Year
  Sex: Male
  Weight: 92 kg

DRUGS (8)
  1. HUMATROPE [Suspect]
     Indication: GROWTH HORMONE DEFICIENCY
     Dosage: 0.3 MG/1 DAY
     Dates: start: 19960227
  2. THYROXINE [Concomitant]
  3. TESTOSTERONE [Concomitant]
  4. OMEPRAZOLE [Concomitant]
  5. HYDROCORTISONE [Concomitant]
  6. METFORMIN HCL [Concomitant]
  7. SPIRONOLACTONE [Concomitant]
  8. LASIX RETARD (FUROSEMIDE) [Concomitant]

REACTIONS (2)
  - DEEP VEIN THROMBOSIS [None]
  - VARICOSE VEIN [None]
